FAERS Safety Report 5072553-4 (Version None)
Quarter: 2006Q3

REPORT INFORMATION
  Report Type: 
  Country: None (occurrence: None)
  Receive Date: 20060801
  Receipt Date: 20060717
  Transmission Date: 20061208
  Serious: Yes (Hospitalization, Other)
  Sender: FDA-Public Use
  Company Number: FR200607001132

PATIENT
  Age: 81 Year
  Sex: Female

DRUGS (9)
  1. FORTEO [Suspect]
     Indication: OSTEOPOROSIS
     Dosage: 20 UG, DAILY (1/D), SUBCUTANEOUS
     Route: 058
     Dates: start: 20050727, end: 20060626
  2. FORTEO [Concomitant]
  3. LEVOTHYROXINE SODIUM [Concomitant]
  4. ATARAX [Concomitant]
  5. TANAKAN (GINKGO BILOBA EXTRACT) [Concomitant]
  6. ESOMEPRAZOLE (ESOMEPRAZOLE) [Concomitant]
  7. FORLAX (MACROGOL) [Concomitant]
  8. DILTIAZEM HCL [Concomitant]
  9. ASPIRIN [Concomitant]

REACTIONS (19)
  - ANGINA PECTORIS [None]
  - AORTIC VALVE SCLEROSIS [None]
  - AORTIC VALVE STENOSIS [None]
  - C-REACTIVE PROTEIN INCREASED [None]
  - CAROTID ARTERY ATHEROMA [None]
  - CAROTID ARTERY STENOSIS [None]
  - CEREBRAL ATROPHY [None]
  - COMA [None]
  - CONFUSIONAL STATE [None]
  - COORDINATION ABNORMAL [None]
  - DISORIENTATION [None]
  - EXTENSOR PLANTAR RESPONSE [None]
  - GRAND MAL CONVULSION [None]
  - HYPERCHOLESTEROLAEMIA [None]
  - HYPONATRAEMIA [None]
  - HYPOPROTEINAEMIA [None]
  - ISCHAEMIC STROKE [None]
  - LEUKOARAIOSIS [None]
  - PSYCHOMOTOR RETARDATION [None]
